FAERS Safety Report 5027925-0 (Version None)
Quarter: 2006Q2

REPORT INFORMATION
  Report Type: 
  Country: None (occurrence: None)
  Receive Date: 20060616
  Receipt Date: 20060519
  Transmission Date: 20061013
  Serious: Yes (Other)
  Sender: FDA-Public Use
  Company Number: JP-MERCK-0605USA04420

PATIENT
  Age: 19 Year
  Sex: Male

DRUGS (5)
  1. PRIMAXIN [Suspect]
     Indication: GASTROENTERITIS
     Route: 042
     Dates: start: 20060517, end: 20060518
  2. PRIMPERAN TAB [Concomitant]
     Route: 042
     Dates: start: 20060517, end: 20060518
  3. PEPCID [Suspect]
     Route: 042
     Dates: start: 20060517, end: 20060518
  4. TWINPAL [Concomitant]
     Route: 042
     Dates: start: 20060517, end: 20060517
  5. SOLITA T-3 [Concomitant]
     Route: 042
     Dates: start: 20060517, end: 20060518

REACTIONS (1)
  - BLOOD CREATINE PHOSPHOKINASE INCREASED [None]
